FAERS Safety Report 4330473-4 (Version None)
Quarter: 2004Q1

REPORT INFORMATION
  Report Type: 
  Country: None (occurrence: None)
  Receive Date: 20040330
  Receipt Date: 20040316
  Transmission Date: 20041129
  Serious: No
  Sender: FDA-Public Use
  Company Number: RENA-10878

PATIENT
  Age: 63 Year
  Sex: Female
  Weight: 40 kg

DRUGS (6)
  1. RENAGEL [Suspect]
     Indication: HYPERPHOSPHATAEMIA
     Dates: start: 20031101, end: 20031219
  2. MONOSORDIL [Concomitant]
  3. SALOSPIR [Concomitant]
  4. THYRORMONE [Concomitant]
  5. TOPAMAX [Concomitant]
  6. FILICINE [Concomitant]

REACTIONS (2)
  - GASTRIC HAEMORRHAGE [None]
  - HAEMATOCRIT DECREASED [None]
